FAERS Safety Report 19277745 (Version 1)
Quarter: 2021Q2

REPORT INFORMATION
  Report Type: Spontaneous
  Country: US (occurrence: US)
  Receive Date: 20210520
  Receipt Date: 20210520
  Transmission Date: 20210717
  Serious: No
  Sender: FDA-Public Use
  Company Number: US-BRISTOL-MYERS SQUIBB COMPANY-BMS-2021-048892

PATIENT
  Age: 57 Year
  Sex: Female

DRUGS (2)
  1. ORENCIA [Suspect]
     Active Substance: ABATACEPT
     Indication: ARTHRALGIA
     Dosage: 125 MILLIGRAM, QWK
     Route: 058
     Dates: start: 20200325
  2. ORENCIA [Suspect]
     Active Substance: ABATACEPT
     Indication: ARTHRALGIA
     Dosage: 125 MILLIGRAM, QWK
     Route: 058
     Dates: start: 20200325

REACTIONS (2)
  - Intentional product use issue [Unknown]
  - Condition aggravated [Unknown]

NARRATIVE: CASE EVENT DATE: 202104
